FAERS Safety Report 22849975 (Version 3)
Quarter: 2023Q4

REPORT INFORMATION
  Report Type: Report from Study
  Country: JP (occurrence: JP)
  Receive Date: 20230822
  Receipt Date: 20231002
  Transmission Date: 20240110
  Serious: Yes (Life-Threatening, Hospitalization, Other)
  Sender: FDA-Public Use
  Company Number: JP-PFIZER INC-2019027735

PATIENT
  Age: 68 Year
  Sex: Female
  Weight: 42 kg

DRUGS (15)
  1. BESPONSA [Suspect]
     Active Substance: INOTUZUMAB OZOGAMICIN
     Indication: Acute lymphocytic leukaemia refractory
     Dosage: 0.8 MG/M2, 1X/DAY, CYCLE 1
     Route: 041
     Dates: start: 20181221, end: 20181221
  2. BESPONSA [Suspect]
     Active Substance: INOTUZUMAB OZOGAMICIN
     Dosage: 0.5 MG/M2, 1X/DAY, CYCLE 1
     Route: 041
     Dates: start: 20181228, end: 20181228
  3. BESPONSA [Suspect]
     Active Substance: INOTUZUMAB OZOGAMICIN
     Dosage: 0.5 MG/M2, 1X/DAY, CYCLE 2
     Dates: start: 20190222, end: 20190222
  4. ACYCLOVIR [Concomitant]
     Active Substance: ACYCLOVIR
     Indication: Infection prophylaxis
     Dosage: UNK
     Route: 048
     Dates: start: 2018
  5. ALPRAZOLAM [Concomitant]
     Active Substance: ALPRAZOLAM
     Indication: Insomnia
     Dosage: UNK
     Route: 048
     Dates: start: 2018
  6. URSODIOL [Concomitant]
     Active Substance: URSODIOL
     Indication: Liver disorder
     Dosage: UNK
     Route: 048
     Dates: start: 20181220
  7. ATOVAQUONE [Concomitant]
     Active Substance: ATOVAQUONE
     Indication: Antifungal prophylaxis
     Dosage: UNK
     Route: 048
     Dates: start: 2018
  8. TRAZODONE [Concomitant]
     Active Substance: TRAZODONE HYDROCHLORIDE
     Indication: Insomnia
     Dosage: UNK
     Route: 048
     Dates: start: 2018
  9. PANTETHINE [Concomitant]
     Active Substance: PANTETHINE
     Indication: Constipation
     Dosage: UNK
     Route: 048
     Dates: start: 2018
  10. VFEND [Concomitant]
     Active Substance: VORICONAZOLE
     Indication: Antifungal prophylaxis
     Dosage: UNK
     Route: 048
     Dates: start: 2018
  11. BROTIZOLAM [Concomitant]
     Active Substance: BROTIZOLAM
     Indication: Insomnia
     Dosage: UNK
     Route: 048
     Dates: start: 2018
  12. MAGNESIUM OXIDE [Concomitant]
     Active Substance: MAGNESIUM OXIDE
     Indication: Constipation
     Dosage: UNK
     Route: 048
     Dates: start: 2018
  13. LANSOPRAZOLE [Concomitant]
     Active Substance: LANSOPRAZOLE
     Indication: Prophylaxis against gastrointestinal ulcer
     Dosage: UNK
     Route: 048
     Dates: start: 2018
  14. LEVOFLOXACIN [Concomitant]
     Active Substance: LEVOFLOXACIN
     Indication: Prophylaxis
     Dosage: UNK
     Route: 048
     Dates: start: 20181130
  15. FILGRASTIM [Concomitant]
     Active Substance: FILGRASTIM
     Indication: Neutrophil count decreased
     Dosage: UNK
     Route: 058
     Dates: start: 20181230

REACTIONS (3)
  - Platelet count decreased [Not Recovered/Not Resolved]
  - Febrile neutropenia [Recovering/Resolving]
  - Pneumonia [Recovering/Resolving]

NARRATIVE: CASE EVENT DATE: 20190104
